FAERS Safety Report 11274416 (Version 3)
Quarter: 2015Q4

REPORT INFORMATION
  Report Type: Spontaneous
  Country: US (occurrence: US)
  Receive Date: 20150715
  Receipt Date: 20151117
  Transmission Date: 20160304
  Serious: Yes (Hospitalization, Other)
  Sender: FDA-Public Use
  Company Number: US-PFIZER INC-2015232653

PATIENT
  Age: 58 Year
  Sex: Female
  Weight: 76 kg

DRUGS (16)
  1. VALTREX [Concomitant]
     Active Substance: VALACYCLOVIR HYDROCHLORIDE
     Indication: PROPHYLAXIS
  2. LYRICA [Suspect]
     Active Substance: PREGABALIN
     Indication: FIBROMYALGIA
     Dosage: 75MG IN THE MORNING AND 100MG AT NIGHT
     Dates: start: 2004, end: 201506
  3. LYRICA [Suspect]
     Active Substance: PREGABALIN
     Indication: HYPERAESTHESIA
  4. CYMBALTA [Concomitant]
     Active Substance: DULOXETINE HYDROCHLORIDE
     Indication: PAIN
     Dosage: 60 MG, 1X/DAY
     Dates: start: 2014
  5. FLEXERIL [Concomitant]
     Active Substance: CYCLOBENZAPRINE HYDROCHLORIDE
     Dosage: 10 MG, 1X/DAY, AT NIGHT
     Dates: start: 2014
  6. CRESTOR [Concomitant]
     Active Substance: ROSUVASTATIN CALCIUM
     Indication: BLOOD CHOLESTEROL INCREASED
     Dosage: 10 MG EVERY DAY
     Dates: start: 2011
  7. VALTREX [Concomitant]
     Active Substance: VALACYCLOVIR HYDROCHLORIDE
     Indication: HERPES VIRUS INFECTION
     Dosage: 200 MG, 2X/DAY
     Dates: start: 2012
  8. NEXIUM [Concomitant]
     Active Substance: ESOMEPRAZOLE MAGNESIUM
     Dosage: UNK
     Dates: start: 2011
  9. PANTOPRAZOLE [Concomitant]
     Active Substance: PANTOPRAZOLE SODIUM
     Indication: GASTROOESOPHAGEAL REFLUX DISEASE
     Dosage: 40 MG, 1X/DAY
     Dates: start: 2015
  10. KLONOPIN [Concomitant]
     Active Substance: CLONAZEPAM
     Indication: SLEEP DISORDER
     Dosage: 1 MG, 1X/DAY, AT NIGHT
     Dates: start: 2011
  11. BUPROPION XL [Concomitant]
     Active Substance: BUPROPION
     Indication: ANXIETY
     Dosage: 300 MG, UNK
     Route: 048
     Dates: start: 2012
  12. BUPROPION XL [Concomitant]
     Active Substance: BUPROPION
     Indication: DEPRESSION
  13. ULTRAM [Concomitant]
     Active Substance: TRAMADOL HYDROCHLORIDE
     Indication: PAIN
     Dosage: 50 MG, 3X/DAY, EVERY 8 HOURS (NOT ALWAYS TAKE IT EVERY EIGHT HOURS)
     Dates: start: 2012
  14. PLAQUENIL [Concomitant]
     Active Substance: HYDROXYCHLOROQUINE SULFATE
     Indication: RHEUMATOID ARTHRITIS
     Dosage: UNK
     Dates: start: 2015
  15. METAXALONE. [Concomitant]
     Active Substance: METAXALONE
     Indication: FIBROMYALGIA
     Dosage: 800 MG, AS NEEDED
  16. RESTASIS [Concomitant]
     Active Substance: CYCLOSPORINE
     Indication: EPISCLERITIS
     Dosage: 0.2 ML (0.05ML EYE EMULSION, TWO DROPS IN EACH EYE), 2X/DAY
     Route: 047
     Dates: start: 2014

REACTIONS (24)
  - Transient ischaemic attack [Recovered/Resolved]
  - Arrhythmia [Recovered/Resolved]
  - Dizziness [Recovered/Resolved]
  - Muscle disorder [Not Recovered/Not Resolved]
  - Muscle twitching [Recovered/Resolved]
  - Stress [Unknown]
  - Fibromyalgia [Recovered/Resolved]
  - Abdominal pain lower [Not Recovered/Not Resolved]
  - Condition aggravated [Unknown]
  - Bursitis [Unknown]
  - Drug tolerance increased [Recovered/Resolved]
  - Condition aggravated [Recovered/Resolved]
  - Eye disorder [Unknown]
  - Spinal pain [Not Recovered/Not Resolved]
  - Hyperaesthesia [Not Recovered/Not Resolved]
  - Muscle tightness [Unknown]
  - Atrial fibrillation [Not Recovered/Not Resolved]
  - Blood glucose increased [Not Recovered/Not Resolved]
  - Malaise [Recovered/Resolved]
  - Abdominal pain [Recovered/Resolved]
  - Tinnitus [Recovered/Resolved]
  - Dry eye [Unknown]
  - Back pain [Unknown]
  - Pain [Unknown]

NARRATIVE: CASE EVENT DATE: 2004
